FAERS Safety Report 23942166 (Version 2)
Quarter: 2024Q3

REPORT INFORMATION
  Report Type: Spontaneous
  Country: FR (occurrence: FR)
  Receive Date: 20240605
  Receipt Date: 20240701
  Transmission Date: 20241016
  Serious: Yes (Other)
  Sender: ELI LILLY AND CO
  Company Number: FR-ELI_LILLY_AND_COMPANY-FR202405015585

PATIENT
  Age: 76 Year
  Sex: Male

DRUGS (4)
  1. INSULIN GLARGINE [Suspect]
     Active Substance: INSULIN GLARGINE
     Indication: Type 2 diabetes mellitus
     Dosage: 26 U, DAILY
     Route: 058
     Dates: start: 202205
  2. INSULIN GLARGINE [Suspect]
     Active Substance: INSULIN GLARGINE
     Indication: Type 2 diabetes mellitus
     Dosage: 26 U, DAILY
     Route: 058
     Dates: start: 202205
  3. INSULIN GLARGINE [Suspect]
     Active Substance: INSULIN GLARGINE
     Dosage: 26 U, DAILY
     Route: 058
     Dates: start: 202205
  4. INSULIN GLARGINE [Suspect]
     Active Substance: INSULIN GLARGINE
     Dosage: 26 U, DAILY
     Route: 058
     Dates: start: 202205

REACTIONS (8)
  - Neoplasm malignant [Not Recovered/Not Resolved]
  - Cataract [Unknown]
  - Balance disorder [Unknown]
  - Tooth loss [Unknown]
  - Fatigue [Unknown]
  - General physical health deterioration [Unknown]
  - Confusional state [Unknown]
  - Incorrect product administration duration [Unknown]
